FAERS Safety Report 6410149-X (Version None)
Quarter: 2009Q4

REPORT INFORMATION
  Report Type: 
  Country: None (occurrence: None)
  Receive Date: 20091022
  Receipt Date: 20091013
  Transmission Date: 20100525
  Serious: Yes (Hospitalization)
  Sender: FDA-Public Use
  Company Number: AT-ROCHE-660472

PATIENT
  Sex: Male

DRUGS (3)
  1. XELODA [Suspect]
     Dosage: FREQUENCY: DAY 1 TO DAY 14
     Route: 065
     Dates: start: 20090301, end: 20090601
  2. OXALIPLATIN [Suspect]
     Dosage: FREQUENCY: DAY 1
     Route: 065
     Dates: start: 20090301, end: 20090601
  3. ASPIRIN [Concomitant]
     Dosage: STARTED MANY YEARS AGO
     Dates: end: 20080901

REACTIONS (1)
  - PULMONARY FIBROSIS [None]
